FAERS Safety Report 7429392-6 (Version None)
Quarter: 2011Q2

REPORT INFORMATION
  Report Type: 
  Country: None (occurrence: None)
  Receive Date: 20110414
  Receipt Date: 20110401
  Transmission Date: 20111010
  Serious: Yes (Hospitalization, Other)
  Sender: FDA-Public Use
  Company Number: GB-ACCORD-008240

PATIENT
  Age: 36 Year
  Sex: Female

DRUGS (4)
  1. LACOSAMIDE [Suspect]
     Indication: EPILEPSY
     Dosage: 100.00-MG
  2. OXCARBAZEPINE [Suspect]
     Indication: EPILEPSY
     Dosage: 1350.00-MG-
  3. TOPIRAMATE [Suspect]
     Indication: EPILEPSY
     Dosage: 250.00-MG /ORAL
     Route: 048
  4. PHENYTOIN [Suspect]
     Indication: EPILEPSY
     Dosage: 150.00-MG

REACTIONS (6)
  - DIPLOPIA [None]
  - CONVULSION [None]
  - DRUG INTERACTION [None]
  - ANTICONVULSANT DRUG LEVEL DECREASED [None]
  - BALANCE DISORDER [None]
  - NEUROTOXICITY [None]
